FAERS Safety Report 4487719-1 (Version None)
Quarter: 2004Q4

REPORT INFORMATION
  Report Type: 
  Country: None (occurrence: None)
  Receive Date: 20041025
  Receipt Date: 20041010
  Transmission Date: 20050328
  Serious: Yes (Hospitalization, Other)
  Sender: FDA-Public Use
  Company Number: HQWYE098816SEP04

PATIENT
  Age: 39 Year
  Sex: Female

DRUGS (5)
  1. RAPAMUNE [Suspect]
     Indication: PROPHYLAXIS AGAINST TRANSPLANT REJECTION
     Dosage: 2 MG 1X PER 1 DAY
     Route: 048
     Dates: start: 20031202
  2. AZATHIOPRINE [Concomitant]
  3. METHYLPREDNISOLONE [Concomitant]
  4. RANITIDINE [Concomitant]
  5. TRIMETOPRIM-SULFA (SULFAMETHOXAZOLE/TRIMETHOPRIM) [Concomitant]

REACTIONS (11)
  - BLOOD CREATININE INCREASED [None]
  - BLOOD UREA ABNORMAL [None]
  - DYSURIA [None]
  - GRAFT COMPLICATION [None]
  - HAEMATOCRIT DECREASED [None]
  - OEDEMA [None]
  - ORTHOPNOEA [None]
  - PLEURAL EFFUSION [None]
  - PROTEINURIA [None]
  - RENAL DISORDER [None]
  - URINARY SEDIMENT PRESENT [None]
